FAERS Safety Report 7000375-3 (Version None)
Quarter: 2010Q3

REPORT INFORMATION
  Report Type: 
  Country: None (occurrence: None)
  Receive Date: 20100920
  Receipt Date: 20091102
  Transmission Date: 20110219
  Serious: Yes (Other)
  Sender: FDA-Public Use
  Company Number: US-ASTRAZENECA-2009UW18889

PATIENT
  Age: 41 Year
  Sex: Female
  Weight: 72.6 kg

DRUGS (5)
  1. SEROQUEL [Suspect]
     Indication: DEPRESSION
     Route: 048
     Dates: start: 20040901
  2. SEROQUEL [Suspect]
     Indication: BIPOLAR DISORDER
     Route: 048
     Dates: start: 20040901
  3. SEROQUEL [Suspect]
     Indication: SCHIZOAFFECTIVE DISORDER
     Route: 048
     Dates: start: 20040901
  4. RISPERDAL [Concomitant]
     Dates: start: 19980101, end: 20040101
  5. ABILIFY [Concomitant]
     Dates: start: 20080101

REACTIONS (3)
  - DIABETES MELLITUS [None]
  - FIBROMYALGIA [None]
  - PANCREATITIS CHRONIC [None]
